FAERS Safety Report 25649603 (Version 1)
Quarter: 2025Q3

REPORT INFORMATION
  Report Type: Report from Study
  Country: US (occurrence: US)
  Receive Date: 20250806
  Receipt Date: 20250806
  Transmission Date: 20251021
  Serious: Yes (Life-Threatening, Hospitalization)
  Sender: MYLAN
  Company Number: US-MYLANLABS-2025M1065565

PATIENT
  Age: 37 Year
  Sex: Female

DRUGS (22)
  1. METHADONE [Suspect]
     Active Substance: METHADONE HYDROCHLORIDE
     Indication: Product used for unknown indication
  2. METHADONE [Suspect]
     Active Substance: METHADONE HYDROCHLORIDE
     Route: 048
  3. METHADONE [Suspect]
     Active Substance: METHADONE HYDROCHLORIDE
     Route: 048
  4. METHADONE [Suspect]
     Active Substance: METHADONE HYDROCHLORIDE
  5. CEFUROXIME [Suspect]
     Active Substance: CEFUROXIME
     Indication: Product used for unknown indication
  6. CEFUROXIME [Suspect]
     Active Substance: CEFUROXIME
     Route: 048
  7. CEFUROXIME [Suspect]
     Active Substance: CEFUROXIME
     Route: 048
  8. CEFUROXIME [Suspect]
     Active Substance: CEFUROXIME
  9. FLUOXETINE [Suspect]
     Active Substance: FLUOXETINE HYDROCHLORIDE
     Indication: Product used for unknown indication
  10. FLUOXETINE [Suspect]
     Active Substance: FLUOXETINE HYDROCHLORIDE
     Route: 048
  11. FLUOXETINE [Suspect]
     Active Substance: FLUOXETINE HYDROCHLORIDE
     Route: 048
  12. FLUOXETINE [Suspect]
     Active Substance: FLUOXETINE HYDROCHLORIDE
  13. CLONAZEPAM [Suspect]
     Active Substance: CLONAZEPAM
     Indication: Product used for unknown indication
     Route: 048
  14. CLONAZEPAM [Suspect]
     Active Substance: CLONAZEPAM
  15. ALCOHOL [Suspect]
     Active Substance: ALCOHOL
     Indication: Product used for unknown indication
  16. ALCOHOL [Suspect]
     Active Substance: ALCOHOL
     Route: 048
  17. ALCOHOL [Suspect]
     Active Substance: ALCOHOL
     Route: 048
  18. ALCOHOL [Suspect]
     Active Substance: ALCOHOL
  19. BENZONATATE [Suspect]
     Active Substance: BENZONATATE
     Indication: Product used for unknown indication
  20. BENZONATATE [Suspect]
     Active Substance: BENZONATATE
     Route: 048
  21. BENZONATATE [Suspect]
     Active Substance: BENZONATATE
     Route: 048
  22. BENZONATATE [Suspect]
     Active Substance: BENZONATATE

REACTIONS (1)
  - Accidental exposure to product [Unknown]
